FAERS Safety Report 4407427-2 (Version None)
Quarter: 2004Q3

REPORT INFORMATION
  Report Type: 
  Country: None (occurrence: None)
  Receive Date: 20040721
  Receipt Date: 20040708
  Transmission Date: 20050211
  Serious: Yes (Other)
  Sender: FDA-Public Use
  Company Number: 2004045648

PATIENT
  Age: 52 Year
  Sex: Male

DRUGS (2)
  1. DIFLUCAN [Suspect]
     Indication: SYSTEMIC CANDIDA
     Dosage: 400 MG, (1 IN 1 D), INTRAVENOUS
     Route: 042
     Dates: start: 20040626, end: 20040705
  2. MEROPENEM TRIHYDRATE     (MEROPENEM TRIHYDRATE) [Concomitant]

REACTIONS (1)
  - INTERSTITIAL LUNG DISEASE [None]
